FAERS Safety Report 14340426 (Version 2)
Quarter: 2019Q1

REPORT INFORMATION
  Report Type: Report from Study
  Country: DE (occurrence: DE)
  Receive Date: 20180101
  Receipt Date: 20190125
  Transmission Date: 20190417
  Serious: Yes (Other)
  Sender: FDA-Public Use
  Company Number: DE-ACCORD-062443

PATIENT
  Sex: Male

DRUGS (3)
  1. CARBOPLATIN. [Suspect]
     Active Substance: CARBOPLATIN
     Indication: RHABDOID TUMOUR OF THE KIDNEY
  2. ETOPOSIDE. [Suspect]
     Active Substance: ETOPOSIDE
     Indication: RHABDOID TUMOUR OF THE KIDNEY
  3. MELPHALAN. [Suspect]
     Active Substance: MELPHALAN
     Indication: RHABDOID TUMOUR OF THE KIDNEY

REACTIONS (3)
  - Acute kidney injury [Unknown]
  - Venoocclusive disease [Unknown]
  - Off label use [Unknown]
